FAERS Safety Report 20551005 (Version 3)
Quarter: 2024Q1

REPORT INFORMATION
  Report Type: Spontaneous
  Country: US (occurrence: US)
  Receive Date: 20220304
  Receipt Date: 20240311
  Transmission Date: 20240410
  Serious: No
  Sender: FDA-Public Use
  Company Number: US-RECORDATI RARE DISEASE INC.-2022000815

PATIENT

DRUGS (9)
  1. ISTURISA [Suspect]
     Active Substance: OSILODROSTAT PHOSPHATE
     Indication: Pituitary-dependent Cushing^s syndrome
     Dosage: 1 MILLIGRAM, BID (FIRST DOSE AT 5PM AND SECOND DOSE AT 10PM)
     Route: 048
     Dates: start: 20220202
  2. ISTURISA [Suspect]
     Active Substance: OSILODROSTAT PHOSPHATE
     Dosage: CORRECTED HIGH DOSE
     Route: 048
     Dates: start: 2022
  3. ISTURISA [Suspect]
     Active Substance: OSILODROSTAT PHOSPHATE
     Dosage: 70 MG
     Route: 048
  4. KLONOPIN [Concomitant]
     Active Substance: CLONAZEPAM
     Indication: Insomnia
  5. RESTORIL [Concomitant]
     Active Substance: TEMAZEPAM
     Indication: Insomnia
  6. ZOLOFT [Concomitant]
     Active Substance: SERTRALINE HYDROCHLORIDE
     Indication: Depression
  7. VITAMIN D NOS [Concomitant]
     Active Substance: VITAMIN D NOS
     Indication: Hypovitaminosis
  8. SYNTHROID [Concomitant]
     Active Substance: LEVOTHYROXINE SODIUM
     Indication: Hypothyroidism
  9. OZEMPIC [Concomitant]
     Active Substance: SEMAGLUTIDE
     Indication: Diabetes mellitus

REACTIONS (8)
  - Night sweats [Recovered/Resolved]
  - Weight increased [Not Recovered/Not Resolved]
  - Anxiety [Recovered/Resolved]
  - Anxiety [Not Recovered/Not Resolved]
  - Insomnia [Recovered/Resolved]
  - Heart rate increased [Not Recovered/Not Resolved]
  - Blood corticotrophin increased [Unknown]
  - Overdose [Recovered/Resolved]

NARRATIVE: CASE EVENT DATE: 20220224
